FAERS Safety Report 8595310-0 (Version None)
Quarter: 2012Q3

REPORT INFORMATION
  Report Type: 
  Country: None (occurrence: None)
  Receive Date: 20120815
  Receipt Date: 20120808
  Transmission Date: 20120928
  Serious: Yes (Hospitalization)
  Sender: FDA-Public Use
  Company Number: US-ALEXION-A201201433

PATIENT
  Sex: Male
  Weight: 17.6 kg

DRUGS (16)
  1. PREVACID [Concomitant]
     Dosage: 15 MG, BID
     Route: 051
  2. SODIUM CHLORIDE [Concomitant]
     Dosage: 100 MEQ, QD
     Route: 051
  3. VITAMIN B COMPLEX CAP [Concomitant]
     Dosage: 0.5 DF, QD
     Route: 051
  4. SOLIRIS [Suspect]
     Indication: HAEMOLYTIC URAEMIC SYNDROME
     Dosage: 300 MG, QW
     Route: 042
     Dates: start: 20120722
  5. SOLIRIS [Suspect]
     Dosage: 600 MG, SINGLE
     Route: 042
     Dates: start: 20120715, end: 20120715
  6. ALLOPURINOL [Concomitant]
     Dosage: 26 MG, QD
     Route: 051
  7. CALCITRIOL [Concomitant]
     Dosage: 0.2 MCG BID
     Route: 051
  8. MIRALAX [Concomitant]
     Dosage: 0.5 DF, QOD
     Route: 051
  9. VITAMIN D [Concomitant]
     Dosage: 400 UT, QD
     Route: 051
  10. IRON [Concomitant]
     Dosage: 1.5 ML, BID
     Route: 051
  11. ZOFRAN [Concomitant]
     Indication: VOMITING
  12. COENZYME Q10 [Concomitant]
     Dosage: 0.5 DF, QD
     Route: 051
  13. AMLODIPINE [Concomitant]
     Dosage: 1.5 ML, BID
     Route: 051
  14. ZOFRAN [Concomitant]
     Indication: NAUSEA
     Dosage: 4 MG, PRN
     Route: 051
  15. BENADRYL [Concomitant]
     Indication: HYPERSENSITIVITY
     Dosage: PRN
  16. KAYEXALATE [Concomitant]
     Dosage: 2 TSP
     Route: 051

REACTIONS (1)
  - CATHETER SITE INFECTION [None]
